FAERS Safety Report 9454860 (Version 1)
Quarter: 2013Q3

REPORT INFORMATION
  Report Type: Spontaneous
  Country: IT (occurrence: IT)
  Receive Date: 20130813
  Receipt Date: 20130813
  Transmission Date: 20140515
  Serious: Yes (Other)
  Sender: FDA-Public Use
  Company Number: IT-ROCHE-1258847

PATIENT
  Age: 58 Year
  Sex: Female

DRUGS (6)
  1. TOCILIZUMAB [Suspect]
     Indication: PRODUCT USED FOR UNKNOWN INDICATION
     Route: 065
  2. ENBREL [Suspect]
     Indication: RHEUMATOID ARTHRITIS
     Route: 058
     Dates: start: 20130301, end: 20130515
  3. METHOTREXATE SODIUM [Concomitant]
  4. LANSOPRAZOLE [Concomitant]
  5. ALENDRONIC ACID/CHOLECALCIFEROL [Concomitant]
  6. CARDIOASPIRIN [Concomitant]

REACTIONS (1)
  - Psoriasis [Recovering/Resolving]
